FAERS Safety Report 11792139 (Version 1)
Quarter: 2015Q4

REPORT INFORMATION
  Report Type: Spontaneous
  Country: DE (occurrence: DE)
  Receive Date: 20151201
  Receipt Date: 20151201
  Transmission Date: 20160305
  Serious: Yes (Other)
  Sender: FDA-Public Use
  Company Number: DE-ELI_LILLY_AND_COMPANY-DE201511006938

PATIENT
  Age: 55 Year
  Sex: Male

DRUGS (1)
  1. RAMUCIRUMAB [Suspect]
     Active Substance: RAMUCIRUMAB
     Indication: OESOPHAGEAL NEOPLASM
     Dosage: UNK
     Route: 065
     Dates: start: 201507, end: 201508

REACTIONS (2)
  - Lung abscess [Unknown]
  - Perforation [Unknown]
